FAERS Safety Report 14635962 (Version 4)
Quarter: 2018Q2

REPORT INFORMATION
  Report Type: Spontaneous
  Country: US (occurrence: US)
  Receive Date: 20180314
  Receipt Date: 20180509
  Transmission Date: 20180711
  Serious: Yes (Hospitalization, Other)
  Sender: FDA-Public Use
  Company Number: US-PFIZER INC-2018095803

PATIENT
  Age: 76 Year
  Sex: Female
  Weight: 73 kg

DRUGS (4)
  1. XELJANZ XR [Suspect]
     Active Substance: TOFACITINIB CITRATE
     Indication: RHEUMATOID ARTHRITIS
     Dosage: 11 MG, 1X/DAY
     Route: 048
  2. SYNTHROID [Concomitant]
     Active Substance: LEVOTHYROXINE SODIUM
     Indication: THYROID DISORDER
     Dosage: 88 UG, 1X/DAY
     Route: 048
  3. NEXIUM [Concomitant]
     Active Substance: ESOMEPRAZOLE MAGNESIUM
     Indication: DYSPEPSIA
  4. NEXIUM [Concomitant]
     Active Substance: ESOMEPRAZOLE MAGNESIUM
     Indication: BARRETT^S OESOPHAGUS
     Dosage: 40 MG, 1X/DAY
     Route: 048

REACTIONS (9)
  - Cataract [Unknown]
  - Gastric haemorrhage [Unknown]
  - Oesophagitis [Unknown]
  - Gastric disorder [Recovered/Resolved]
  - Abdominal pain upper [Unknown]
  - Pyrexia [Unknown]
  - Vomiting [Unknown]
  - Diverticulitis [Unknown]
  - Dysphagia [Unknown]

NARRATIVE: CASE EVENT DATE: 20180320
